FAERS Safety Report 6335418-3 (Version None)
Quarter: 2009Q3

REPORT INFORMATION
  Report Type: 
  Country: None (occurrence: None)
  Receive Date: 20090831
  Receipt Date: 20090824
  Transmission Date: 20100115
  Serious: Yes (Hospitalization, Other)
  Sender: FDA-Public Use
  Company Number: PHHY2009JP28839

PATIENT
  Sex: Female
  Weight: 54 kg

DRUGS (4)
  1. NEORAL [Suspect]
     Indication: DERMATITIS ATOPIC
     Dosage: 150 MG/DAY
     Route: 048
     Dates: start: 20090528, end: 20090713
  2. ALLELOCK [Concomitant]
     Indication: DERMATITIS ATOPIC
     Dosage: 20 MG
     Route: 048
  3. POLARAMINE [Concomitant]
     Indication: DERMATITIS ATOPIC
     Dosage: 6 MG
     Route: 048
  4. ATARAX [Concomitant]
     Indication: DERMATITIS ATOPIC
     Route: 048

REACTIONS (8)
  - HERPES SIMPLEX [None]
  - IMPETIGO [None]
  - JOINT INJURY [None]
  - KAPOSI'S VARICELLIFORM ERUPTION [None]
  - LYMPHADENOPATHY [None]
  - PYREXIA [None]
  - SKIN EROSION [None]
  - WOUND SECRETION [None]
